FAERS Safety Report 24068343 (Version 1)
Quarter: 2024Q3

REPORT INFORMATION
  Report Type: Spontaneous
  Country: JP (occurrence: JP)
  Receive Date: 20240710
  Receipt Date: 20240710
  Transmission Date: 20241017
  Serious: No
  Sender: ROCHE
  Company Number: JP-CHUGAI-2023031872

PATIENT

DRUGS (1)
  1. VABYSMO [Suspect]
     Active Substance: FARICIMAB\FARICIMAB-SVOA
     Indication: Vogt-Koyanagi-Harada disease
     Dosage: UNK, ONCE/8WEEKS
     Route: 050

REACTIONS (2)
  - Off label use [Unknown]
  - No adverse event [Unknown]
